FAERS Safety Report 9660576 (Version 1)
Quarter: 2013Q4

REPORT INFORMATION
  Report Type: Spontaneous
  Country: GB (occurrence: GB)
  Receive Date: 20131031
  Receipt Date: 20131031
  Transmission Date: 20140711
  Serious: Yes (Disabling, Other)
  Sender: FDA-Public Use
  Company Number: GB-PFIZER INC-2013305620

PATIENT
  Age: 51 Year
  Sex: Female
  Weight: 82.55 kg

DRUGS (3)
  1. VENLAFAXINE HCL [Suspect]
     Indication: DEPRESSION SUICIDAL
     Dosage: 325 MG, UNK
     Route: 048
     Dates: start: 2012
  2. QUETIAPINE [Concomitant]
     Dosage: UNK
  3. LITHIUM [Concomitant]
     Dosage: UNK

REACTIONS (2)
  - Conversion disorder [Not Recovered/Not Resolved]
  - Crying [Not Recovered/Not Resolved]
